FAERS Safety Report 21368730 (Version 6)
Quarter: 2023Q2

REPORT INFORMATION
  Report Type: Report from Study
  Country: US (occurrence: US)
  Receive Date: 20220923
  Receipt Date: 20230509
  Transmission Date: 20230721
  Serious: Yes (Hospitalization)
  Sender: FDA-Public Use
  Company Number: None

PATIENT
  Age: 51 Year
  Sex: Female
  Weight: 148.32 kg

DRUGS (4)
  1. HUMIRA [Suspect]
     Active Substance: ADALIMUMAB
     Indication: Crohn^s disease
     Route: 058
     Dates: start: 20140101
  2. PFIZER-BIONTECH COVID-19 VACCINE [Concomitant]
     Active Substance: TOZINAMERAN
     Indication: COVID-19 immunisation
     Dosage: SECOND DOSE: ONE IN ONCE
     Route: 030
     Dates: start: 20211112, end: 20211112
  3. PFIZER-BIONTECH COVID-19 VACCINE [Concomitant]
     Active Substance: TOZINAMERAN
     Indication: COVID-19 immunisation
     Dosage: 2ND DOSE: ONE IN ONCE
     Route: 030
     Dates: start: 20210412, end: 20210412
  4. PFIZER-BIONTECH COVID-19 VACCINE [Concomitant]
     Active Substance: TOZINAMERAN
     Indication: COVID-19 immunisation
     Dosage: FIRST DOSE 1 IN ONCE
     Route: 030
     Dates: start: 20211020, end: 20211020

REACTIONS (12)
  - Muscular weakness [Recovering/Resolving]
  - Cellulitis [Recovered/Resolved]
  - Cough [Not Recovered/Not Resolved]
  - Cellulitis [Recovered/Resolved]
  - Pneumonia [Unknown]
  - Dehydration [Unknown]
  - Musculoskeletal disorder [Unknown]
  - Dizziness [Unknown]
  - Chest pain [Unknown]
  - Fall [Unknown]
  - Blister [Unknown]
  - Contrast media reaction [Unknown]

NARRATIVE: CASE EVENT DATE: 20220727
